FAERS Safety Report 5184643-6 (Version None)
Quarter: 2006Q4

REPORT INFORMATION
  Report Type: 
  Country: None (occurrence: None)
  Receive Date: 20061220
  Receipt Date: 20060322
  Transmission Date: 20070319
  Serious: No
  Sender: FDA-Public Use
  Company Number: US-GLAXOSMITHKLINE-A0598529A

PATIENT
  Age: 27 Year
  Sex: Female

DRUGS (1)
  1. EQUATE NTS 14MG [Suspect]
     Dates: start: 20060316

REACTIONS (8)
  - APPLICATION SITE ERYTHEMA [None]
  - APPLICATION SITE IRRITATION [None]
  - APPLICATION SITE PRURITUS [None]
  - APPLICATION SITE SWELLING [None]
  - DIZZINESS [None]
  - HEADACHE [None]
  - NAUSEA [None]
  - NICOTINE DEPENDENCE [None]
